FAERS Safety Report 24576605 (Version 2)
Quarter: 2024Q4

REPORT INFORMATION
  Report Type: Report from Study
  Country: AR (occurrence: AR)
  Receive Date: 20241104
  Receipt Date: 20241209
  Transmission Date: 20250114
  Serious: Yes (Life-Threatening)
  Sender: NOVARTIS
  Company Number: AR-002147023-NVSC2024AR212603

PATIENT
  Age: 79 Year
  Sex: Female

DRUGS (5)
  1. KISQALI [Suspect]
     Active Substance: RIBOCICLIB
     Indication: Breast cancer metastatic
     Dosage: UNK
     Route: 065
     Dates: start: 20240930
  2. KISQALI [Suspect]
     Active Substance: RIBOCICLIB
     Dosage: 3 DOSAGE FORM, QD (200 MG) MID MORNING
     Route: 065
  3. KISQALI [Suspect]
     Active Substance: RIBOCICLIB
     Dosage: UNK, 1ST CYCLE
     Route: 065
  4. KISQALI [Suspect]
     Active Substance: RIBOCICLIB
     Dosage: UNK, 2ND CYCLE
     Route: 065
  5. LOSARTAN [Concomitant]
     Active Substance: LOSARTAN
     Indication: Hypertension
     Dosage: 2 DOSAGE FORM, BID, 50 MG, TABLET, 1 IN THE MORNING AND 1 AT NIGHT
     Route: 065

REACTIONS (8)
  - Platelet count abnormal [Recovered/Resolved]
  - Platelet count decreased [Recovered/Resolved]
  - White blood cell count abnormal [Unknown]
  - Anaemia [Unknown]
  - Platelet count decreased [Recovered/Resolved]
  - Fatigue [Unknown]
  - Somnolence [Unknown]
  - Cough [Unknown]

NARRATIVE: CASE EVENT DATE: 20241021
